FAERS Safety Report 4279586-6 (Version None)
Quarter: 2004Q1

REPORT INFORMATION
  Report Type: 
  Country: None (occurrence: None)
  Receive Date: 20040123
  Receipt Date: 20040115
  Transmission Date: 20041129
  Serious: Yes (Hospitalization)
  Sender: FDA-Public Use
  Company Number: 2003190333JP

PATIENT
  Age: 39 Year
  Sex: Female

DRUGS (8)
  1. VANTIN [Suspect]
     Dosage: ORAL
     Route: 048
     Dates: start: 20030527, end: 20030530
  2. GASTER [Concomitant]
  3. MUCOSTA (REBAMIPIDE) [Concomitant]
  4. KETAS (IBUDILAST) [Concomitant]
  5. TERRANAS [Concomitant]
  6. MERISLON (BETAHISTINE HYDROCHLORIDE) [Concomitant]
  7. SERENZIN [Concomitant]
  8. LEXOTAN [Concomitant]

REACTIONS (6)
  - CONVULSION [None]
  - GAIT DISTURBANCE [None]
  - HEADACHE [None]
  - HEMIPARESIS [None]
  - NERVE COMPRESSION [None]
  - PYREXIA [None]
